FAERS Safety Report 5448257-2 (Version None)
Quarter: 2007Q3

REPORT INFORMATION
  Report Type: 
  Country: None (occurrence: None)
  Receive Date: 20070911
  Receipt Date: 20070903
  Transmission Date: 20080115
  Serious: Yes (Congenital Anomaly)
  Sender: FDA-Public Use
  Company Number: PHRM2007FR02143

PATIENT
  Age: 1 Day
  Sex: Male
  Weight: 3.65 kg

DRUGS (3)
  1. URBANYL [Suspect]
     Dosage: MATERNAL DOSE: 15 MG/DAY
     Route: 064
  2. PAROXETINE HCL [Suspect]
     Dosage: MATERNAL DOSE: 20 MG/DAY
     Route: 064
  3. TEGRETOL [Suspect]
     Dosage: MATERNAL DOSE: 400 MG/DAY
     Route: 064

REACTIONS (3)
  - DRUG EXPOSURE DURING PREGNANCY [None]
  - HYPOTONIA NEONATAL [None]
  - SYNDACTYLY [None]
